FAERS Safety Report 6592140-6 (Version None)
Quarter: 2010Q1

REPORT INFORMATION
  Report Type: 
  Country: None (occurrence: None)
  Receive Date: 20100221
  Receipt Date: 20090902
  Transmission Date: 20100710
  Serious: No
  Sender: FDA-Public Use
  Company Number: US-ALLERGAN-0912329US

PATIENT
  Sex: Female

DRUGS (2)
  1. BOTOX [Suspect]
     Indication: DRUG USE FOR UNKNOWN INDICATION
     Dosage: UNK
     Dates: start: 20090901, end: 20090901
  2. JUVEDERM [Suspect]

REACTIONS (4)
  - DRY MOUTH [None]
  - DYSPNOEA [None]
  - HYPOAESTHESIA [None]
  - PHARYNGEAL HYPOAESTHESIA [None]
